FAERS Safety Report 8721999 (Version 3)
Quarter: 2012Q4

REPORT INFORMATION
  Report Type: 
  Country: GB (occurrence: GB)
  Receive Date: 20120814
  Receipt Date: 20120912
  Transmission Date: 20130627
  Serious: Yes (Other)
  Sender: FDA-Public Use
  Company Number: GB-BAYER-2012-082261

PATIENT
  Age: 61 Year
  Sex: Female

DRUGS (2)
  1. BETAFERON [Suspect]
     Indication: MULTIPLE SCLEROSIS
     Dosage: 250 ?g, QOD
     Route: 058
     Dates: start: 201207, end: 20120805
  2. BETAFERON [Suspect]
     Indication: MULTIPLE SCLEROSIS

REACTIONS (8)
  - Dyspnoea [None]
  - Rash erythematous [Recovering/Resolving]
  - Influenza like illness [Recovering/Resolving]
  - Injection site reaction [None]
  - Pain [None]
  - Skin exfoliation [Recovering/Resolving]
  - Discomfort [None]
  - Paraesthesia [None]
